FAERS Safety Report 17632631 (Version 1)
Quarter: 2020Q2

REPORT INFORMATION
  Report Type: Spontaneous
  Country: US (occurrence: US)
  Receive Date: 20200406
  Receipt Date: 20200406
  Transmission Date: 20200713
  Serious: Yes (Other)
  Sender: FDA-Public Use
  Company Number: US-AMGEN-USASP2020054166

PATIENT

DRUGS (1)
  1. TRASTUZUMAB. [Suspect]
     Active Substance: TRASTUZUMAB
     Dosage: UNK
     Route: 065

REACTIONS (1)
  - Cardiotoxicity [Unknown]
